FAERS Safety Report 10269743 (Version 1)
Quarter: 2014Q2

REPORT INFORMATION
  Report Type: Spontaneous
  Country: US (occurrence: None)
  Receive Date: 20140626
  Receipt Date: 20140626
  Transmission Date: 20141212
  Serious: No
  Sender: FDA-Public Use
  Company Number: None

PATIENT
  Sex: Male
  Weight: 82.1 kg

DRUGS (2)
  1. METHYLPREDNISOLONE [Suspect]
     Indication: ARTHROPATHY
     Dosage: 4 MG DOSE PK?21 EA?(1) 6 PILLS?(2) 5?(3) 3?(4) 4?(5) -2?(6)-1
     Route: 048
     Dates: start: 20140501, end: 20140506
  2. METHYLPREDNISOLONE [Suspect]
     Indication: ARTHROPATHY
     Dosage: 4 MG DOSE PK?21 EA?(1) 6 PILLS?(2) 5?(3) 3?(4) 4?(5) -2?(6)-1
     Route: 048
     Dates: start: 20140501, end: 20140506

REACTIONS (7)
  - Nausea [None]
  - Headache [None]
  - Dizziness [None]
  - Pollakiuria [None]
  - Chills [None]
  - Visual impairment [None]
  - Dyspnoea [None]
